FAERS Safety Report 7384064-1 (Version None)
Quarter: 2011Q1

REPORT INFORMATION
  Report Type: 
  Country: None (occurrence: None)
  Receive Date: 20110330
  Receipt Date: 20110318
  Transmission Date: 20110831
  Serious: Yes (Hospitalization)
  Sender: FDA-Public Use
  Company Number: A0757777A

PATIENT
  Age: 41 Year
  Sex: Female
  Weight: 84.5 kg

DRUGS (8)
  1. METFORMIN [Concomitant]
  2. TOPROL-XL [Concomitant]
  3. AVANDIA [Suspect]
     Dosage: 8MG PER DAY
     Route: 048
     Dates: start: 19991228, end: 20060530
  4. HUMULIN R [Concomitant]
  5. REZULIN [Concomitant]
  6. TRAZODONE [Concomitant]
  7. METOPROLOL [Concomitant]
  8. NITROGLYCERIN [Concomitant]

REACTIONS (4)
  - ARTERIOSCLEROSIS [None]
  - CORONARY ARTERY DISEASE [None]
  - MYOCARDIAL INFARCTION [None]
  - WEIGHT INCREASED [None]
